FAERS Safety Report 12651732 (Version 1)
Quarter: 2016Q3

REPORT INFORMATION
  Report Type: Spontaneous
  Country: US (occurrence: US)
  Receive Date: 20160815
  Receipt Date: 20160815
  Transmission Date: 20161109
  Serious: No
  Sender: FDA-Public Use
  Company Number: US-ASTRAZENECA-2016SE84438

PATIENT
  Age: 27056 Day
  Sex: Female

DRUGS (5)
  1. SYMBICORT [Suspect]
     Active Substance: BUDESONIDE\FORMOTEROL FUMARATE DIHYDRATE
     Indication: CHRONIC OBSTRUCTIVE PULMONARY DISEASE
     Dosage: SYMBICORT 80/4.5 MCG. 2 PUFFS 2 TIMES DAILY
     Route: 055
     Dates: start: 20160722
  2. SYMBICORT [Suspect]
     Active Substance: BUDESONIDE\FORMOTEROL FUMARATE DIHYDRATE
     Indication: BRONCHIECTASIS
     Dosage: SYMBICORT 80/4.5 MCG. 2 PUFFS 2 TIMES DAILY
     Route: 055
     Dates: start: 20160722
  3. PREDNISONE. [Concomitant]
     Active Substance: PREDNISONE
  4. ANTIBIOTICS [Concomitant]
     Active Substance: UNSPECIFIED INGREDIENT
  5. SYMBICORT [Suspect]
     Active Substance: BUDESONIDE\FORMOTEROL FUMARATE DIHYDRATE
     Indication: ASTHMA
     Dosage: SYMBICORT 80/4.5 MCG. 2 PUFFS 2 TIMES DAILY
     Route: 055
     Dates: start: 20160722

REACTIONS (4)
  - Diarrhoea [Unknown]
  - Vision blurred [Unknown]
  - Blood urea increased [Unknown]
  - Muscle spasms [Unknown]

NARRATIVE: CASE EVENT DATE: 20160722
